FAERS Safety Report 22532593 (Version 1)
Quarter: 2023Q2

REPORT INFORMATION
  Report Type: Report from Study
  Country: IN (occurrence: IN)
  Receive Date: 20230607
  Receipt Date: 20230607
  Transmission Date: 20230721
  Serious: Yes (Death, Hospitalization)
  Sender: FDA-Public Use
  Company Number: IN-002147023-NVSC2019IN021659

PATIENT
  Age: 56 Year
  Sex: Male

DRUGS (5)
  1. GLYCOPYRROLATE\INDACATEROL MALEATE [Suspect]
     Active Substance: GLYCOPYRROLATE\INDACATEROL MALEATE
     Indication: Chronic obstructive pulmonary disease
     Dosage: 1 DF, QD (50 UG GLYCOPYRRONIUM BROMIDE, 110 UG INDACATEROL MALEATE)
     Dates: start: 201909
  2. ETOFYLLINE\THEOPHYLLINE [Concomitant]
     Active Substance: ETOFYLLINE\THEOPHYLLINE
     Indication: Product used for unknown indication
     Dosage: UNK
  3. BUDESONIDE\FORMOTEROL FUMARATE [Concomitant]
     Active Substance: BUDESONIDE\FORMOTEROL FUMARATE
     Indication: Product used for unknown indication
     Dosage: 200 OT
  4. ASSURANS [Concomitant]
     Indication: Product used for unknown indication
     Dosage: 20 MG
     Route: 065
  5. PIOGLITAZONE HYDROCHLORIDE [Concomitant]
     Active Substance: PIOGLITAZONE HYDROCHLORIDE
     Indication: Product used for unknown indication
     Dosage: 15 MG
     Route: 065

REACTIONS (5)
  - Death [Fatal]
  - Angina pectoris [Unknown]
  - Discomfort [Unknown]
  - Dyspnoea [Unknown]
  - Electrocardiogram abnormal [Unknown]

NARRATIVE: CASE EVENT DATE: 20191016
